FAERS Safety Report 4312408-3 (Version None)
Quarter: 2004Q1

REPORT INFORMATION
  Report Type: 
  Country: None (occurrence: None)
  Receive Date: 20040303
  Receipt Date: 20040223
  Transmission Date: 20041129
  Serious: Yes (Death)
  Sender: FDA-Public Use
  Company Number: US-JNJFOC-20040205543

PATIENT
  Sex: Female

DRUGS (1)
  1. RISPERDAL [Suspect]
     Dosage: 0.5 MG, 2 IN 1 DAY, ORAL
     Route: 048

REACTIONS (1)
  - DEATH [None]
